FAERS Safety Report 7598350-3 (Version None)
Quarter: 2011Q3

REPORT INFORMATION
  Report Type: 
  Country: None (occurrence: None)
  Receive Date: 20110708
  Receipt Date: 20110706
  Transmission Date: 20111222
  Serious: Yes (Death, Hospitalization)
  Sender: FDA-Public Use
  Company Number: PHHO2011CA09245

PATIENT
  Sex: Male
  Weight: 76 kg

DRUGS (4)
  1. SLOW-K [Concomitant]
     Indication: HYPOKALAEMIA
     Dosage: UNK
  2. NOVOHYDRAZIDE [Concomitant]
     Indication: HYPERTENSION
     Dosage: UNK
     Dates: start: 20000101, end: 20110517
  3. AFINITOR [Suspect]
     Indication: RENAL CELL CARCINOMA
     Dosage: 10 MG, DAILY
     Route: 048
     Dates: start: 20110311, end: 20110525
  4. TYLENOL W/ CODEINE NO. 3 [Concomitant]
     Indication: ABDOMINAL PAIN UPPER
     Dosage: UNK

REACTIONS (6)
  - NEOPLASM MALIGNANT [None]
  - CARDIAC FAILURE CONGESTIVE [None]
  - RESPIRATORY FAILURE [None]
  - PNEUMONIA [None]
  - PNEUMONITIS [None]
  - PULMONARY EMBOLISM [None]
